FAERS Safety Report 5332580-6 (Version None)
Quarter: 2007Q2

REPORT INFORMATION
  Report Type: 
  Country: None (occurrence: None)
  Receive Date: 20070523
  Receipt Date: 20070513
  Transmission Date: 20071010
  Serious: Yes (Other)
  Sender: FDA-Public Use
  Company Number: US-SHR-US-2007-017341

PATIENT
  Age: 16 Year
  Sex: Female
  Weight: 65 kg

DRUGS (4)
  1. YAZ [Suspect]
     Dosage: 1 TAB(S), 1X/DAY
     Route: 048
     Dates: start: 20070101, end: 20070513
  2. NICOMIDE [Concomitant]
     Indication: ACNE
     Dosage: UNK, 2X/DAY
     Route: 048
     Dates: start: 20060401
  3. ASMANEX TWISTHALER [Concomitant]
     Indication: ASTHMA
     Dosage: UNK, 1X/DAY
  4. ADVIL [Concomitant]
     Indication: PAIN
     Dosage: UNK, AS REQ'D

REACTIONS (3)
  - ABASIA [None]
  - MUSCULAR WEAKNESS [None]
  - PAIN IN EXTREMITY [None]
